FAERS Safety Report 22061529 (Version 1)
Quarter: 2023Q1

REPORT INFORMATION
  Report Type: Report from Study
  Country: CH (occurrence: CH)
  Receive Date: 20230304
  Receipt Date: 20230304
  Transmission Date: 20230418
  Serious: Yes (Hospitalization)
  Sender: FDA-Public Use
  Company Number: CH-ABBVIE-4174673

PATIENT
  Age: 77 Year
  Sex: Male

DRUGS (4)
  1. CARBIDOPA\LEVODOPA [Suspect]
     Active Substance: CARBIDOPA\LEVODOPA
     Indication: Parkinson^s disease
     Dosage: MD: 7.0 ML, CRD: 4.7 ML/H, CRN: 2.0 ML/H ED: 2.0 ML, DA: 5.1 ML?24H THERAPY
     Route: 050
     Dates: start: 20220929
  2. CARBIDOPA\LEVODOPA [Suspect]
     Active Substance: CARBIDOPA\LEVODOPA
     Dosage: MD: 7.0 ML, CRD: 4.7 ML/H, CRN: 2.2 ML/H ED: 2.0 ML?24H THERAPY
     Route: 050
     Dates: start: 20220628, end: 20220929
  3. CARBIDOPA\LEVODOPA [Suspect]
     Active Substance: CARBIDOPA\LEVODOPA
     Dosage: 24H THERAPY
     Route: 050
     Dates: start: 20211121
  4. CARBIDOPA\LEVODOPA [Suspect]
     Active Substance: CARBIDOPA\LEVODOPA
     Dosage: MD: 7.0 ML, CRD: 4.6 ML/H, CRN: 2.0 ML/H ED: 2.0 ML?24H THERAPY
     Route: 050
     Dates: start: 20220518, end: 20220628

REACTIONS (6)
  - Malaise [Not Recovered/Not Resolved]
  - Unevaluable event [Not Recovered/Not Resolved]
  - Device occlusion [Recovered/Resolved]
  - Akinesia [Not Recovered/Not Resolved]
  - Gait disturbance [Recovered/Resolved]
  - Device occlusion [Unknown]

NARRATIVE: CASE EVENT DATE: 20221001
